FAERS Safety Report 15956565 (Version 1)
Quarter: 2019Q1

REPORT INFORMATION
  Report Type: Report from Study
  Country: US (occurrence: US)
  Receive Date: 20190213
  Receipt Date: 20190213
  Transmission Date: 20190417
  Serious: Yes (Other)
  Sender: FDA-Public Use
  Company Number: US-JNJFOC-20190214395

PATIENT
  Sex: Male

DRUGS (12)
  1. TIMOLOL. [Concomitant]
     Active Substance: TIMOLOL
  2. IMBRUVICA [Suspect]
     Active Substance: IBRUTINIB
     Indication: CHRONIC LYMPHOCYTIC LEUKAEMIA RECURRENT
     Route: 048
     Dates: start: 2017
  3. DIAZEPAM. [Concomitant]
     Active Substance: DIAZEPAM
  4. CODEINE [Concomitant]
     Active Substance: CODEINE
  5. FLUTICASONE PROPIONATE. [Concomitant]
     Active Substance: FLUTICASONE PROPIONATE
  6. METOPROLOL. [Concomitant]
     Active Substance: METOPROLOL
  7. TRAMADOL. [Concomitant]
     Active Substance: TRAMADOL
  8. IMBRUVICA [Suspect]
     Active Substance: IBRUTINIB
     Indication: CHRONIC LYMPHOCYTIC LEUKAEMIA RECURRENT
     Route: 048
     Dates: end: 201901
  9. BENICAR [Concomitant]
     Active Substance: OLMESARTAN MEDOXOMIL
  10. PROMETHAZINE [Concomitant]
     Active Substance: PROMETHAZINE\PROMETHAZINE HYDROCHLORIDE
  11. XARELTO [Concomitant]
     Active Substance: RIVAROXABAN
  12. OMEPRAZOLE. [Concomitant]
     Active Substance: OMEPRAZOLE

REACTIONS (3)
  - Drug ineffective [Unknown]
  - Lymphadenopathy [Unknown]
  - Mesenteric neoplasm [Recovering/Resolving]
